FAERS Safety Report 12383656 (Version 22)
Quarter: 2020Q2

REPORT INFORMATION
  Report Type: Report from Study
  Country: DE (occurrence: DE)
  Receive Date: 20160519
  Receipt Date: 20200408
  Transmission Date: 20200713
  Serious: Yes (Other)
  Sender: FDA-Public Use
  Company Number: DE-ROCHE-1611753

PATIENT
  Age: 67 Year
  Sex: Female
  Weight: 82 kg

DRUGS (19)
  1. CANDESARTAN. [Concomitant]
     Active Substance: CANDESARTAN
     Route: 065
  2. METOCLOPRAMID [METOCLOPRAMIDE] [Concomitant]
     Active Substance: METOCLOPRAMIDE
     Route: 065
  3. MAALOXAN [ALUMINIUM HYDROXIDE;MAGNESIUM HYDROXIDE] [Concomitant]
     Dosage: UP TO TWO SACS DAILY BEFORE NIGHT
     Route: 065
  4. MAALOXAN [ALUMINIUM HYDROXIDE;MAGNESIUM HYDROXIDE] [Concomitant]
     Dosage: TWO SACS AT NIGHT
     Route: 065
  5. RELVAR [Concomitant]
     Active Substance: FLUTICASONE FUROATE\VILANTEROL TRIFENATATE
     Route: 065
  6. ESBRIET [Suspect]
     Active Substance: PIRFENIDONE
     Indication: IDIOPATHIC PULMONARY FIBROSIS
     Route: 048
     Dates: start: 20130410, end: 20160512
  7. ESBRIET [Suspect]
     Active Substance: PIRFENIDONE
     Route: 048
     Dates: start: 20190415, end: 20190421
  8. ESOMEPRAZOLE. [Concomitant]
     Active Substance: ESOMEPRAZOLE MAGNESIUM
     Route: 065
  9. EUTHYROX [Concomitant]
     Active Substance: LEVOTHYROXINE SODIUM
     Route: 065
  10. DEKRISTOL [Concomitant]
     Active Substance: CHOLECALCIFEROL
     Route: 065
  11. XARELTO [Concomitant]
     Active Substance: RIVAROXABAN
     Route: 065
  12. DOMPERIDONE [Concomitant]
     Active Substance: DOMPERIDONE
     Route: 048
  13. ESBRIET [Suspect]
     Active Substance: PIRFENIDONE
     Dosage: IN THE MORNING AND AT NOON
     Route: 048
     Dates: start: 20190415, end: 20190421
  14. L-THYROXINE [LEVOTHYROXINE] [Concomitant]
     Active Substance: LEVOTHYROXINE
  15. ESBRIET [Suspect]
     Active Substance: PIRFENIDONE
     Indication: IDIOPATHIC PULMONARY FIBROSIS
     Route: 048
     Dates: start: 20180115
  16. ESBRIET [Suspect]
     Active Substance: PIRFENIDONE
     Route: 048
     Dates: start: 20190422
  17. ESBRIET [Suspect]
     Active Substance: PIRFENIDONE
     Route: 048
     Dates: start: 20130410
  18. FOSTER [Concomitant]
     Active Substance: BECLOMETHASONE\FORMOTEROL
     Dosage: 100 UG/6 UG PER DOSAGE
     Route: 055
  19. ENALAPRIL [Concomitant]
     Active Substance: ENALAPRIL
     Route: 065

REACTIONS (35)
  - Pulmonary pain [Unknown]
  - Fatigue [Unknown]
  - Chest X-ray abnormal [Unknown]
  - Abdominal pain upper [Recovering/Resolving]
  - Facial pain [Unknown]
  - Abdominal discomfort [Not Recovered/Not Resolved]
  - Cough [Not Recovered/Not Resolved]
  - Sunburn [Recovered/Resolved]
  - Photosensitivity reaction [Unknown]
  - Sleep disorder [Recovering/Resolving]
  - Dyspepsia [Recovering/Resolving]
  - Aphonia [Unknown]
  - Gastric ulcer [Not Recovered/Not Resolved]
  - Abdominal pain upper [Recovered/Resolved]
  - Chest discomfort [Recovered/Resolved]
  - Dyspnoea [Recovered/Resolved]
  - Dyspnoea [Not Recovered/Not Resolved]
  - Gastrooesophageal reflux disease [Recovering/Resolving]
  - Dysphonia [Not Recovered/Not Resolved]
  - Cough [Recovering/Resolving]
  - Gastrointestinal disorder [Not Recovered/Not Resolved]
  - Gastrooesophageal reflux disease [Recovering/Resolving]
  - Weight increased [Not Recovered/Not Resolved]
  - Vomiting [Recovered/Resolved]
  - Drug hypersensitivity [Unknown]
  - Pustule [Unknown]
  - Headache [Unknown]
  - Erythema [Unknown]
  - Cough [Unknown]
  - Asthenia [Recovered/Resolved]
  - Rash pruritic [Recovered/Resolved]
  - Nausea [Not Recovered/Not Resolved]
  - Underdose [Unknown]
  - Pruritus [Unknown]
  - Asthma [Unknown]

NARRATIVE: CASE EVENT DATE: 20130410
